FAERS Safety Report 11650248 (Version 1)
Quarter: 2015Q4

REPORT INFORMATION
  Report Type: Other
  Country: US (occurrence: US)
  Receive Date: 20151021
  Receipt Date: 20151021
  Transmission Date: 20160304
  Serious: No
  Sender: FDA-Public Use
  Company Number: US-DEP_07265_2015

PATIENT
  Sex: Female

DRUGS (2)
  1. NUCYNTA [Concomitant]
     Active Substance: TAPENTADOL HYDROCHLORIDE
     Indication: BACK PAIN
     Dosage: 75 MG (IMMEDIATE RELEASE)
     Dates: end: 201407
  2. NUCYNTA ER [Suspect]
     Active Substance: TAPENTADOL HYDROCHLORIDE
     Indication: BACK PAIN
     Dosage: 150 MG, 1.5 TABLETS/DAY
     Route: 048
     Dates: start: 20140718

REACTIONS (5)
  - Pain [Not Recovered/Not Resolved]
  - Vomiting [Unknown]
  - Dyspnoea [Not Recovered/Not Resolved]
  - Fear [Not Recovered/Not Resolved]
  - Wrong technique in product usage process [Not Recovered/Not Resolved]

NARRATIVE: CASE EVENT DATE: 20140718
